FAERS Safety Report 5091148-X (Version None)
Quarter: 2006Q3

REPORT INFORMATION
  Report Type: 
  Country: None (occurrence: None)
  Receive Date: 20060824
  Receipt Date: 20060814
  Transmission Date: 20061208
  Serious: Yes (Other)
  Sender: FDA-Public Use
  Company Number: 2006099995

PATIENT
  Sex: Female
  Weight: 59.4212 kg

DRUGS (3)
  1. LYRICA [Suspect]
     Indication: NERVE INJURY
     Dosage: 150 MG (50 MG, 3 IN 1 D)
     Dates: start: 20060804
  2. ELAVIL [Concomitant]
  3. TRAMADOL/ACETAMINOPHEN (PARACETAMOL) [Concomitant]

REACTIONS (6)
  - CONFUSIONAL STATE [None]
  - EUPHORIC MOOD [None]
  - FALL [None]
  - HEADACHE [None]
  - MOVEMENT DISORDER [None]
  - MUSCLE TWITCHING [None]
